FAERS Safety Report 6297773-2 (Version None)
Quarter: 2009Q3

REPORT INFORMATION
  Report Type: 
  Country: None (occurrence: None)
  Receive Date: 20090804
  Receipt Date: 20090804
  Transmission Date: 20100115
  Serious: Yes (Other)
  Sender: FDA-Public Use
  Company Number: None

PATIENT
  Sex: Female
  Weight: 67.1324 kg

DRUGS (5)
  1. SINGULAIR [Suspect]
     Indication: ASTHMA
     Dosage: 10 MG, TWICE DAILY, PO
     Route: 048
     Dates: start: 20070701, end: 20090701
  2. ALBUTEROL RESCUE INHALER [Concomitant]
  3. FLOVENT [Concomitant]
  4. FLONAISE NASAL SPRAY [Concomitant]
  5. HYDROCORTISONE CREAM [Concomitant]

REACTIONS (7)
  - ANXIETY [None]
  - DEPRESSION [None]
  - DRUG HYPERSENSITIVITY [None]
  - GASTROINTESTINAL PAIN [None]
  - SELF-INJURIOUS IDEATION [None]
  - SUICIDAL IDEATION [None]
  - WEIGHT INCREASED [None]
